FAERS Safety Report 6099603-0 (Version None)
Quarter: 2009Q1

REPORT INFORMATION
  Report Type: 
  Country: None (occurrence: None)
  Receive Date: 20090303
  Receipt Date: 20090220
  Transmission Date: 20090719
  Serious: Yes (Other)
  Sender: FDA-Public Use
  Company Number: US-SANOFI-SYNTHELABO-A03200900366

PATIENT
  Sex: Male
  Weight: 77.1 kg

DRUGS (8)
  1. ZOFRAN [Suspect]
     Indication: NAUSEA
     Dosage: 3 DF
     Route: 065
     Dates: start: 20080806, end: 20081227
  2. ELOXATIN [Suspect]
     Indication: DRUG USE FOR UNKNOWN INDICATION
     Route: 042
  3. XELODA [Suspect]
     Indication: COLON CANCER
     Dosage: 500 MG TWO TIMES A DAY FOR 2 WEEKS FOR 7 CYCLES UNK
     Route: 065
     Dates: start: 20080806, end: 20081225
  4. NEUPOGEN [Concomitant]
     Indication: DRUG USE FOR UNKNOWN INDICATION
     Dosage: 480 MG AFTER CAPECITABINE WAS FINISHED FOR FOUR DAYS FOR CYCLES 5 TO 6 AND 7
     Route: 058
  5. ASPIRIN [Concomitant]
     Indication: DRUG USE FOR UNKNOWN INDICATION
     Route: 065
  6. DOCUSATE [Concomitant]
     Indication: CONSTIPATION
     Dosage: 2-3 TABLETS A DAY
     Route: 065
     Dates: start: 20080901, end: 20090102
  7. SENNOSIDE [Concomitant]
     Indication: CONSTIPATION
     Route: 065
     Dates: start: 20081001, end: 20090102
  8. COMPAZINE [Concomitant]
     Indication: NAUSEA
     Dosage: 14112008 UNK
     Route: 065
     Dates: start: 20081114

REACTIONS (2)
  - ATRIAL FIBRILLATION [None]
  - HEART RATE IRREGULAR [None]
